FAERS Safety Report 9814307 (Version 3)
Quarter: 2014Q3

REPORT INFORMATION
  Report Type: Report from Study
  Country: CA (occurrence: CA)
  Receive Date: 20140113
  Receipt Date: 20140922
  Transmission Date: 20150326
  Serious: Yes (Hospitalization, Other)
  Sender: FDA-Public Use
  Company Number: CA-ABBVIE-14P-028-1187019-00

PATIENT
  Age: 45 Year
  Sex: Female
  Weight: 81.72 kg

DRUGS (4)
  1. HUMIRA [Suspect]
     Active Substance: ADALIMUMAB
     Indication: ANKYLOSING SPONDYLITIS
     Dosage: LAST DOSE: 20-NOV-2013
     Route: 058
     Dates: start: 20101026, end: 20131120
  2. METOPROLOL [Concomitant]
     Active Substance: METOPROLOL
     Indication: PRODUCT USED FOR UNKNOWN INDICATION
     Route: 048
  3. SYNTHROID [Concomitant]
     Active Substance: LEVOTHYROXINE SODIUM
     Indication: PRODUCT USED FOR UNKNOWN INDICATION
  4. HYDROCHLOROTHIAZIDE. [Concomitant]
     Active Substance: HYDROCHLOROTHIAZIDE
     Indication: PRODUCT USED FOR UNKNOWN INDICATION
     Dosage: 12.5MG/25MG ALT DAY

REACTIONS (9)
  - Muscle strain [Recovering/Resolving]
  - Hypoaesthesia [Recovered/Resolved]
  - Intervertebral disc protrusion [Recovering/Resolving]
  - Fracture [Recovered/Resolved]
  - Cartilage injury [Recovered/Resolved]
  - Pain in extremity [Unknown]
  - Musculoskeletal pain [Unknown]
  - Mobility decreased [Unknown]
  - Abasia [Unknown]

NARRATIVE: CASE EVENT DATE: 2013
